FAERS Safety Report 8384357-5 (Version None)
Quarter: 2012Q2

REPORT INFORMATION
  Report Type: 
  Country: None (occurrence: None)
  Receive Date: 20120524
  Receipt Date: 20120517
  Transmission Date: 20120825
  Serious: Yes (Hospitalization, Other)
  Sender: FDA-Public Use
  Company Number: US-GENZYME-CLOF-1002155

PATIENT
  Age: 64 Year
  Sex: Male

DRUGS (25)
  1. THYMOGLOBULIN [Suspect]
     Indication: STEM CELL TRANSPLANT
  2. RITUXIMAB [Suspect]
     Indication: POST TRANSPLANT LYMPHOPROLIFERATIVE DISORDER
     Dosage: PROTOCOL 09-346
     Route: 065
  3. ACYCLOVIR [Concomitant]
     Indication: PRODUCT USED FOR UNKNOWN INDICATION
     Dosage: UNK
     Route: 065
  4. FOLIC ACID [Concomitant]
     Indication: PRODUCT USED FOR UNKNOWN INDICATION
     Dosage: UNK
     Route: 065
  5. MULTI-VITAMIN [Concomitant]
     Indication: PRODUCT USED FOR UNKNOWN INDICATION
     Dosage: UNK
     Route: 065
  6. CLOLAR [Suspect]
     Indication: STEM CELL TRANSPLANT
     Dosage: 30 MG/M2, QD DAY -6 THROUGH -2
     Route: 042
     Dates: start: 20120204, end: 20120208
  7. ALBUTEROL [Concomitant]
     Indication: PRODUCT USED FOR UNKNOWN INDICATION
     Dosage: UNK
     Route: 065
  8. CYCLOSPORINE [Concomitant]
     Indication: PRODUCT USED FOR UNKNOWN INDICATION
     Dosage: UNK
     Route: 065
  9. CLOLAR [Suspect]
     Indication: MULTIPLE MYELOMA
  10. PENTAMIDINE ISETHIONATE [Concomitant]
     Indication: PRODUCT USED FOR UNKNOWN INDICATION
     Dosage: UNK
     Route: 065
  11. THYMOGLOBULIN [Suspect]
     Indication: MULTIPLE MYELOMA
     Dosage: UNK
     Route: 065
  12. BORTEZOMIB [Suspect]
     Indication: POST TRANSPLANT LYMPHOPROLIFERATIVE DISORDER
     Dosage: PROTOCOL 09-346
     Route: 065
  13. RITUXIMAB [Suspect]
     Dosage: PROTOCOL 09-346 DAY 11
     Route: 065
  14. OXYCODONE HCL [Concomitant]
     Indication: PRODUCT USED FOR UNKNOWN INDICATION
     Dosage: UNK
     Route: 065
  15. PREDNISONE [Concomitant]
     Indication: PRODUCT USED FOR UNKNOWN INDICATION
     Dosage: UNK
     Route: 065
  16. BORTEZOMIB [Suspect]
     Dosage: PROTOCOL 09-346
     Route: 065
  17. BORTEZOMIB [Suspect]
     Dosage: PROTOCOL 09-346, DAY 11
     Route: 065
  18. RITUXIMAB [Suspect]
     Dosage: PROTOCOL 09-346
     Route: 065
  19. AMLODIPINE BESYLATE [Concomitant]
     Indication: PRODUCT USED FOR UNKNOWN INDICATION
     Dosage: UNK
     Route: 065
  20. CARVEDILOL [Concomitant]
     Indication: PRODUCT USED FOR UNKNOWN INDICATION
     Dosage: UNK
     Route: 065
  21. LORAZEPAM [Concomitant]
     Indication: PRODUCT USED FOR UNKNOWN INDICATION
     Dosage: UNK
     Route: 065
  22. ONDANSETRON [Concomitant]
     Indication: PRODUCT USED FOR UNKNOWN INDICATION
     Dosage: UNK
     Route: 065
  23. PROCHLORPERAZINE MALEATE [Concomitant]
     Indication: PRODUCT USED FOR UNKNOWN INDICATION
     Dosage: UNK
     Route: 065
  24. OMEPRAZOLE [Concomitant]
     Indication: PRODUCT USED FOR UNKNOWN INDICATION
     Dosage: UNK
     Route: 065
  25. COLECALCIFEROL [Concomitant]
     Indication: PRODUCT USED FOR UNKNOWN INDICATION
     Dosage: UNK
     Route: 065

REACTIONS (5)
  - ABDOMINAL PAIN [None]
  - NAUSEA [None]
  - DECREASED APPETITE [None]
  - POST TRANSPLANT LYMPHOPROLIFERATIVE DISORDER [None]
  - DIARRHOEA [None]
